FAERS Safety Report 17298994 (Version 1)
Quarter: 2020Q1

REPORT INFORMATION
  Report Type: Report from Study
  Country: JP (occurrence: JP)
  Receive Date: 20200121
  Receipt Date: 20200121
  Transmission Date: 20200409
  Serious: Yes (Other)
  Sender: FDA-Public Use
  Company Number: JP-SA-2020SA015463

PATIENT
  Age: 66 Year

DRUGS (2)
  1. PEGYLATED LIPOSOMAL DOXORUBICIN [Suspect]
     Active Substance: DOXORUBICIN
     Indication: OVARIAN CANCER
     Dosage: 25 MG/M2
  2. DOCETAXEL. [Suspect]
     Active Substance: DOCETAXEL
     Indication: OVARIAN CANCER
     Dosage: 50 MG/M2, Q3W
     Route: 042

REACTIONS (9)
  - Metastases to peritoneum [Unknown]
  - Thrombocytopenia [Unknown]
  - Ascites [Unknown]
  - Neutropenia [Unknown]
  - Decreased appetite [Unknown]
  - Alopecia [Unknown]
  - Peripheral sensory neuropathy [Unknown]
  - Haemoglobin decreased [Unknown]
  - Stomatitis [Unknown]
